FAERS Safety Report 7928049-2 (Version None)
Quarter: 2011Q4

REPORT INFORMATION
  Report Type: 
  Country: None (occurrence: None)
  Receive Date: 20111118
  Receipt Date: 20111105
  Transmission Date: 20120403
  Serious: Yes (Death, Hospitalization)
  Sender: FDA-Public Use
  Company Number: BR-SANOFI-AVENTIS-2011SA073424

PATIENT
  Age: 34 Year
  Sex: Female
  Weight: 56 kg

DRUGS (31)
  1. NITROFURANTOIN [Suspect]
     Indication: INFECTION PROPHYLAXIS
     Route: 065
  2. GANCICLOVIR [Suspect]
     Indication: FUSARIUM INFECTION
     Route: 065
  3. OXYTOCIN [Concomitant]
     Indication: CAESAREAN SECTION
     Dosage: DOSE:15 UNIT(S)
     Route: 065
  4. DOBUTAMINE HCL [Concomitant]
     Route: 065
  5. VITAMIN TAB [Concomitant]
     Route: 065
  6. NYSTATIN [Suspect]
     Indication: FUSARIUM INFECTION
     Route: 048
  7. AMPHOTERICIN B [Suspect]
     Route: 065
  8. CEFTRIAXONE [Suspect]
     Route: 065
  9. NYSTATIN [Suspect]
     Route: 048
  10. METAMIZOLE SODIUM [Suspect]
     Indication: TRACHEOBRONCHITIS
     Route: 065
  11. CEFTRIAXONE [Suspect]
     Indication: PYELONEPHRITIS
     Route: 030
  12. CEFTRIAXONE [Suspect]
     Indication: TRACHEOBRONCHITIS
     Route: 030
  13. CEFTRIAXONE [Suspect]
     Route: 065
  14. CLARITHROMYCIN [Suspect]
     Indication: FUSARIUM INFECTION
     Route: 065
  15. IMIPENEM [Suspect]
     Indication: TRACHEOBRONCHITIS
     Route: 065
  16. IMIPENEM [Suspect]
     Route: 065
  17. SODIUM CHLORIDE [Concomitant]
     Route: 065
  18. PROPRANOLOL HCL [Suspect]
     Indication: MITRAL VALVE STENOSIS
     Route: 065
  19. FUROSEMIDE [Suspect]
     Indication: PULMONARY CONGESTION
     Route: 065
  20. NYSTATIN [Suspect]
     Indication: TRACHEOBRONCHITIS
     Route: 048
  21. IMIPENEM [Suspect]
     Indication: FUSARIUM INFECTION
     Route: 065
  22. GANCICLOVIR [Suspect]
     Route: 065
  23. VANCOMYCIN [Suspect]
     Indication: TRACHEOBRONCHITIS
     Route: 065
  24. CLARITHROMYCIN [Suspect]
     Indication: TRACHEOBRONCHITIS
     Route: 065
  25. VANCOMYCIN [Suspect]
     Route: 065
  26. NITRIC OXIDE [Concomitant]
     Indication: CAESAREAN SECTION
     Route: 065
  27. CLARITHROMYCIN [Suspect]
     Route: 065
  28. GANCICLOVIR [Suspect]
     Indication: TRACHEOBRONCHITIS
     Route: 065
  29. VANCOMYCIN [Suspect]
     Indication: FUSARIUM INFECTION
     Route: 065
  30. AMPHOTERICIN B [Suspect]
     Indication: TRACHEOBRONCHITIS
     Route: 065
  31. AMPHOTERICIN B [Suspect]
     Indication: FUSARIUM INFECTION
     Route: 065

REACTIONS (23)
  - LEUKOPENIA [None]
  - HYPERPYREXIA [None]
  - RESPIRATORY DISTRESS [None]
  - CARDIOGENIC SHOCK [None]
  - FUSARIUM INFECTION [None]
  - ORAL CANDIDIASIS [None]
  - MATERNAL EXPOSURE DURING PREGNANCY [None]
  - WHEEZING [None]
  - AGRANULOCYTOSIS [None]
  - PYREXIA [None]
  - METABOLIC ACIDOSIS [None]
  - OLIGURIA [None]
  - BRONCHOPNEUMONIA [None]
  - FUNGAL INFECTION [None]
  - PULMONARY CONGESTION [None]
  - COUGH [None]
  - NEUTROPENIA [None]
  - MULTI-ORGAN FAILURE [None]
  - OXYGEN SATURATION DECREASED [None]
  - DYSPNOEA [None]
  - SEPTIC SHOCK [None]
  - SYSTEMIC INFLAMMATORY RESPONSE SYNDROME [None]
  - RENAL FAILURE ACUTE [None]
